FAERS Safety Report 4541379-X (Version None)
Quarter: 2004Q4

REPORT INFORMATION
  Report Type: 
  Country: None (occurrence: None)
  Receive Date: 20041229
  Receipt Date: 20041129
  Transmission Date: 20050328
  Serious: Yes (Other)
  Sender: FDA-Public Use
  Company Number: US-MERCK-0411USA04102

PATIENT
  Age: 68 Year
  Sex: Female

DRUGS (2)
  1. VIOXX [Suspect]
     Indication: ARTHRITIS
     Route: 048
     Dates: start: 20010101, end: 20040819
  2. SYNTHROID [Concomitant]
     Route: 065

REACTIONS (11)
  - BLINDNESS [None]
  - CHEST PAIN [None]
  - CHROMATURIA [None]
  - DYSPHAGIA [None]
  - DYSPNOEA [None]
  - FATIGUE [None]
  - HEADACHE [None]
  - HYPERTENSION [None]
  - RASH [None]
  - URINE ODOUR ABNORMAL [None]
  - VISION BLURRED [None]
